FAERS Safety Report 4700342-6 (Version None)
Quarter: 2005Q2

REPORT INFORMATION
  Report Type: 
  Country: None (occurrence: None)
  Receive Date: 20050627
  Receipt Date: 20050614
  Transmission Date: 20051028
  Serious: Yes (Hospitalization)
  Sender: FDA-Public Use
  Company Number: US-MERCK-0506USA02208

PATIENT
  Sex: Female

DRUGS (2)
  1. VIOXX [Suspect]
     Indication: PAIN
     Route: 048
     Dates: start: 20010501
  2. VIOXX [Suspect]
     Route: 048

REACTIONS (3)
  - CHEST PAIN [None]
  - PAIN [None]
  - PULMONARY EMBOLISM [None]
